FAERS Safety Report 9188589 (Version 2)
Quarter: 2013Q2

REPORT INFORMATION
  Report Type: Report from Study
  Country: US (occurrence: US)
  Receive Date: 20130325
  Receipt Date: 20130508
  Transmission Date: 20140414
  Serious: Yes (Other)
  Sender: FDA-Public Use
  Company Number: US-US-EMD SERONO, INC.-7200385

PATIENT
  Sex: Female

DRUGS (2)
  1. REBIF [Suspect]
     Indication: MULTIPLE SCLEROSIS
     Route: 058
     Dates: start: 20120609, end: 201208
  2. REBIF [Suspect]
     Route: 058
     Dates: start: 20121218, end: 201301

REACTIONS (1)
  - Iliac artery occlusion [Not Recovered/Not Resolved]
